FAERS Safety Report 10437992 (Version 1)
Quarter: 2014Q3

REPORT INFORMATION
  Report Type: Spontaneous
  Country: US (occurrence: US)
  Receive Date: 20140908
  Receipt Date: 20140908
  Transmission Date: 20150326
  Serious: No
  Sender: FDA-Public Use
  Company Number: US-BRISTOL-MYERS SQUIBB COMPANY-19802040

PATIENT
  Age: 46 Year
  Sex: Female
  Weight: 67.12 kg

DRUGS (4)
  1. TRAZODONE HCL TABS 50 MG [Concomitant]
     Dosage: 1 DF = 1.5 TABLETS QHS.
  2. ABILIFY [Suspect]
     Active Substance: ARIPIPRAZOLE
     Indication: DEPRESSION
  3. VENLAFAXINE HCL [Concomitant]
     Active Substance: VENLAFAXINE HYDROCHLORIDE
  4. ALPRAZOLAM. [Concomitant]
     Active Substance: ALPRAZOLAM

REACTIONS (1)
  - Wrong technique in drug usage process [Unknown]
